FAERS Safety Report 9438144 (Version 1)
Quarter: 2013Q3

REPORT INFORMATION
  Report Type: Spontaneous
  Country: US (occurrence: US)
  Receive Date: 20130802
  Receipt Date: 20130802
  Transmission Date: 20140515
  Serious: No
  Sender: FDA-Public Use
  Company Number: US-BRISTOL-MYERS SQUIBB COMPANY-16846784

PATIENT
  Age: 81 Year
  Sex: Female

DRUGS (1)
  1. COUMADIN TABS 4 MG [Suspect]
     Indication: ATRIAL FIBRILLATION

REACTIONS (4)
  - Sneezing [Unknown]
  - Dyspnoea [Unknown]
  - Pain [Unknown]
  - Chest discomfort [Unknown]
